FAERS Safety Report 21582434 (Version 2)
Quarter: 2023Q1

REPORT INFORMATION
  Report Type: Spontaneous
  Country: US (occurrence: US)
  Receive Date: 20221111
  Receipt Date: 20230118
  Transmission Date: 20230417
  Serious: No
  Sender: FDA-Public Use
  Company Number: US-PFIZER INC-202201290698

PATIENT
  Age: 60 Year
  Sex: Female

DRUGS (6)
  1. IBRANCE [Suspect]
     Active Substance: PALBOCICLIB
     Indication: Breast cancer female
     Dosage: TAKE 1 TABLET ONCE DAILY ON DAYS 1 TO 21, FOLLOWED BY 7 DAYS OF REST, REPEATED EVERY
     Route: 048
  2. VITAMIN C [Concomitant]
     Active Substance: ASCORBIC ACID
     Dosage: UNK
  3. VITAMIN D3 [Concomitant]
     Active Substance: CHOLECALCIFEROL
     Dosage: UNK
  4. MENATETRENONE [Concomitant]
     Active Substance: MENATETRENONE
     Dosage: UNK
  5. LETROZOLE [Concomitant]
     Active Substance: LETROZOLE
     Dosage: UNK
  6. BIOTIN [Concomitant]
     Active Substance: BIOTIN
     Dosage: UNK

REACTIONS (9)
  - Cancer pain [Unknown]
  - Fatigue [Unknown]
  - Dysgeusia [Unknown]
  - Dysuria [Unknown]
  - White blood cell count decreased [Unknown]
  - Skin burning sensation [Unknown]
  - Nausea [Unknown]
  - Alopecia [Unknown]
  - Product dose omission in error [Unknown]
